FAERS Safety Report 9083227 (Version 1)
Quarter: 2013Q1

REPORT INFORMATION
  Report Type: Report from Study
  Country: US (occurrence: US)
  Receive Date: 20130130
  Receipt Date: 20130130
  Transmission Date: 20140127
  Serious: No
  Sender: FDA-Public Use
  Company Number: US-ABBOTT-12P-163-0981543-00

PATIENT
  Sex: Male
  Weight: 108.96 kg

DRUGS (9)
  1. AMBIEN [Concomitant]
     Indication: SLEEP DISORDER THERAPY
  2. XANAX [Concomitant]
     Indication: ANXIETY
     Dates: start: 2012
  3. CODEINE #3 [Concomitant]
     Indication: ABDOMINAL PAIN
  4. FLU SHOT [Concomitant]
     Indication: ANTIVIRAL PROPHYLAXIS
     Dates: start: 201209, end: 201209
  5. HUMIRA [Suspect]
     Indication: CROHN^S DISEASE
     Dates: start: 2011
  6. HUMIRA [Suspect]
     Dates: start: 2012
  7. HUMIRA [Suspect]
  8. VANCOMYCIN [Suspect]
     Indication: BRONCHITIS
  9. GABAPENTIN [Concomitant]
     Indication: ILL-DEFINED DISORDER

REACTIONS (12)
  - Chills [Recovered/Resolved]
  - Vomiting [Recovered/Resolved]
  - Dehydration [Recovered/Resolved]
  - Influenza [Recovered/Resolved]
  - Diarrhoea [Recovered/Resolved]
  - Pyrexia [Recovered/Resolved]
  - Drug ineffective [Not Recovered/Not Resolved]
  - Bronchitis [Recovered/Resolved]
  - Clostridium difficile infection [Recovered/Resolved]
  - Diarrhoea [Not Recovered/Not Resolved]
  - Diarrhoea [Recovered/Resolved]
  - Diarrhoea [Not Recovered/Not Resolved]
